FAERS Safety Report 9496250 (Version 1)
Quarter: 2013Q3

REPORT INFORMATION
  Report Type: Spontaneous
  Country: GB (occurrence: None)
  Receive Date: 20130829
  Receipt Date: 20130829
  Transmission Date: 20140515
  Serious: Yes (Other)
  Sender: FDA-Public Use
  Company Number: CL-515-2013

PATIENT
  Age: 6 Year
  Sex: Female

DRUGS (1)
  1. MIDAZOLAM [Suspect]
     Indication: SEDATION
     Dosage: UNK TO UNK (ONE DAY)
     Route: 042

REACTIONS (2)
  - Dystonia [None]
  - Blood creatine phosphokinase increased [None]
